FAERS Safety Report 21599305 (Version 1)
Quarter: 2022Q4

REPORT INFORMATION
  Report Type: Spontaneous
  Country: US (occurrence: US)
  Receive Date: 20221115
  Receipt Date: 20221115
  Transmission Date: 20230113
  Serious: Yes (Death)
  Sender: FDA-Public Use
  Company Number: US-GRIFOLS-BIG0021031

PATIENT
  Age: 68 Year
  Sex: Female

DRUGS (1)
  1. HUMAN IMMUNOGLOBULIN G [Suspect]
     Active Substance: HUMAN IMMUNOGLOBULIN G
     Indication: Neuromyopathy
     Dosage: 400 MILLIGRAM/KILOGRAM, QD
     Route: 042

REACTIONS (3)
  - Stress cardiomyopathy [Fatal]
  - Chest pain [Fatal]
  - Respiratory failure [Fatal]
